FAERS Safety Report 21997096 (Version 1)
Quarter: 2023Q1

REPORT INFORMATION
  Report Type: Spontaneous
  Country: GB (occurrence: GB)
  Receive Date: 20230215
  Receipt Date: 20230215
  Transmission Date: 20230417
  Serious: Yes (Other)
  Sender: FDA-Public Use
  Company Number: None

PATIENT
  Age: 11 Year
  Sex: Male
  Weight: 55 kg

DRUGS (6)
  1. CONCERTA [Suspect]
     Active Substance: METHYLPHENIDATE HYDROCHLORIDE
     Indication: Autism spectrum disorder
     Route: 048
     Dates: start: 20221202, end: 20230203
  2. METHYLPHENIDATE HYDROCHLORIDE [Concomitant]
     Active Substance: METHYLPHENIDATE HYDROCHLORIDE
     Indication: Autism spectrum disorder
     Dosage: IN THE MORNING
     Dates: start: 20221118
  3. FLUCLOXACILLIN [Concomitant]
     Active Substance: FLUCLOXACILLIN
     Dates: start: 20230109, end: 20230116
  4. HYDROCORTISONE [Concomitant]
     Active Substance: HYDROCORTISONE
     Dates: start: 20230127, end: 20230203
  5. MELATONIN [Concomitant]
     Active Substance: MELATONIN
     Dosage: AT NIGHT, 1-2 HOURS BEFORE BED.
     Dates: start: 20221118
  6. PENICILLIN V [Concomitant]
     Active Substance: PENICILLIN V
     Dosage: FOR 10 DAYS
     Dates: start: 20230130, end: 20230209

REACTIONS (4)
  - Dermatitis allergic [Recovering/Resolving]
  - Skin lesion [Unknown]
  - Rash [Unknown]
  - Product substitution issue [Unknown]

NARRATIVE: CASE EVENT DATE: 20221205
